FAERS Safety Report 9604210 (Version 1)
Quarter: 2013Q2

REPORT INFORMATION
  Report Type: Spontaneous
  Country: FR (occurrence: None)
  Receive Date: 20130513
  Receipt Date: 20130513
  Transmission Date: 20140414
  Serious: Yes (Hospitalization)
  Sender: FDA-Public Use
  Company Number: 2013P1005696

PATIENT
  Age: 48 Year
  Sex: Male

DRUGS (5)
  1. PLAQUENIL [Suspect]
     Indication: SARCOIDOSIS
     Route: 048
     Dates: start: 201203
  2. CORTANCYL (PREDNISONE) [Suspect]
     Indication: SARCOIDOSIS
     Route: 048
     Dates: start: 2012
  3. CRESTOR (ROSUVASTATIN CALCIUM) [Concomitant]
  4. ACTONEL [Concomitant]
  5. STILNOX (ZOLPIDEM TARTRATE) [Concomitant]

REACTIONS (1)
  - Demyelinating polyneuropathy [None]
